FAERS Safety Report 9306304 (Version 1)
Quarter: 2013Q2

REPORT INFORMATION
  Report Type: Spontaneous
  Country: US (occurrence: US)
  Receive Date: 20130523
  Receipt Date: 20130523
  Transmission Date: 20140414
  Serious: No
  Sender: FDA-Public Use
  Company Number: US-ASTRAZENECA-2013SE32679

PATIENT
  Sex: Female

DRUGS (2)
  1. ARIMIDEX [Suspect]
     Dosage: 6 DIFFERENT GENERIC
     Route: 048
  2. ARIMIDEX [Suspect]
     Route: 048

REACTIONS (2)
  - Malaise [Unknown]
  - Intentional drug misuse [Unknown]
